FAERS Safety Report 16534034 (Version 1)
Quarter: 2019Q3

REPORT INFORMATION
  Report Type: Spontaneous
  Country: NL (occurrence: PL)
  Receive Date: 20190705
  Receipt Date: 20190705
  Transmission Date: 20191004
  Serious: Yes (Death, Life-Threatening, Hospitalization, Other)
  Sender: FDA-Public Use
  Company Number: PL-FRESENIUS KABI-FK201907136

PATIENT
  Age: 75 Year
  Sex: Male
  Weight: 83 kg

DRUGS (2)
  1. CEFTRIAXONE SODIUM. [Suspect]
     Active Substance: CEFTRIAXONE SODIUM
     Indication: URINARY TRACT INFECTION
     Dosage: 1 G, UNK
     Route: 042
     Dates: start: 20181215, end: 20181221
  2. LEVOFLOXACIN (MANUFACTURER UNKNOWN) [Suspect]
     Active Substance: LEVOFLOXACIN
     Indication: URINARY TRACT INFECTION
     Dosage: 250
     Route: 042
     Dates: start: 20181215, end: 20181224

REACTIONS (8)
  - Clostridium difficile infection [Recovered/Resolved]
  - Diarrhoea [Recovered/Resolved]
  - Vascular access malfunction [Recovered/Resolved]
  - Candida infection [Fatal]
  - Cardiac failure [Recovered/Resolved]
  - Hepatic failure [Recovered/Resolved]
  - Respiratory failure [Recovered/Resolved]
  - Clostridial sepsis [Recovered/Resolved]

NARRATIVE: CASE EVENT DATE: 20181224
